FAERS Safety Report 4749790-9 (Version None)
Quarter: 2005Q3

REPORT INFORMATION
  Report Type: 
  Country: None (occurrence: None)
  Receive Date: 20050822
  Receipt Date: 20050811
  Transmission Date: 20060218
  Serious: Yes (Hospitalization)
  Sender: FDA-Public Use
  Company Number: US-JNJFOC-20050803318

PATIENT
  Age: 62 Year
  Sex: Male
  Weight: 88.45 kg

DRUGS (3)
  1. RISPERDAL [Suspect]
     Indication: SCHIZOPHRENIA
     Route: 048
  2. ANTIPSYCHOTICS [Concomitant]
  3. BENADRYL [Concomitant]

REACTIONS (5)
  - CARDIAC DISORDER [None]
  - DYSPNOEA [None]
  - FLUID RETENTION [None]
  - GASTROOESOPHAGEAL REFLUX DISEASE [None]
  - WEIGHT DECREASED [None]
